FAERS Safety Report 8961512 (Version 1)
Quarter: 2012Q4

REPORT INFORMATION
  Report Type: 
  Country: US (occurrence: US)
  Receive Date: 20121212
  Receipt Date: 20121212
  Transmission Date: 20130627
  Serious: Yes (Death)
  Sender: FDA-Public Use
  Company Number: US-MUTUAL PHARMACEUTICAL COMPANY, INC.-MTCD20120272

PATIENT
  Sex: Female

DRUGS (4)
  1. METOCLOPRAMIDE [Suspect]
     Indication: BLOATING
     Route: 048
     Dates: start: 1999, end: 200906
  2. METOCLOPRAMIDE [Suspect]
     Indication: HEARTBURN
  3. REGLAN [Suspect]
     Indication: BLOATING
     Route: 048
     Dates: start: 1999, end: 200906
  4. REGLAN [Suspect]
     Indication: HEARTBURN

REACTIONS (3)
  - Parkinson^s disease [None]
  - Essential tremor [None]
  - Death [None]
